FAERS Safety Report 5060976-9 (Version None)
Quarter: 2006Q3

REPORT INFORMATION
  Report Type: 
  Country: None (occurrence: None)
  Receive Date: 20060720
  Receipt Date: 20060712
  Transmission Date: 20061208
  Serious: No
  Sender: FDA-Public Use
  Company Number: 227330

PATIENT
  Age: 4 Year
  Sex: Female

DRUGS (6)
  1. NUTROPIN AQ [Suspect]
     Indication: CARDIOVASCULAR DISORDER
     Dosage: 0.5 MG, 7/WEEK, SUBCUTANEOUS
     Route: 058
     Dates: start: 20060417
  2. DIGOXIN [Concomitant]
  3. LASIX [Concomitant]
  4. VASOTEC [Concomitant]
  5. ASPIRIN [Concomitant]
  6. PERIACTIN [Concomitant]

REACTIONS (2)
  - PYREXIA [None]
  - SPLENOMEGALY [None]
